FAERS Safety Report 7197282-2 (Version None)
Quarter: 2010Q4

REPORT INFORMATION
  Report Type: 
  Country: None (occurrence: None)
  Receive Date: 20101226
  Receipt Date: 20101217
  Transmission Date: 20110411
  Serious: Yes (Death, Hospitalization)
  Sender: FDA-Public Use
  Company Number: FR-BRISTOL-MYERS SQUIBB COMPANY-15450877

PATIENT
  Age: 86 Year
  Sex: Female

DRUGS (7)
  1. COUMADIN [Suspect]
     Dosage: GIVEN ACCORDING TO INR, STOPPED ON 03-NOV-2010 , RECHALLANGED ON 10-NOV-2010
     Dates: end: 20100101
  2. FOSINOPRIL + HCTZ [Concomitant]
     Dosage: FOSINOPRIL + HCTZ TEVA
  3. SOTALOL HCL [Concomitant]
     Dosage: SOTALOL 80 MYLAN, 1DF= 80 MYLAN
  4. PRAVASTATIN SODIUM [Concomitant]
     Dosage: PRAVASTATIN SODIUM MYLAN
  5. LEVOTHYROXINE SODIUM [Concomitant]
  6. VALPROATE SODIUM [Concomitant]
     Dosage: VALPROATE WINTHROP LP
  7. SEROPLEX [Concomitant]

REACTIONS (4)
  - FALL [None]
  - INTERNATIONAL NORMALISED RATIO INCREASED [None]
  - MUSCLE HAEMORRHAGE [None]
  - RENAL FAILURE ACUTE [None]
